FAERS Safety Report 12903997 (Version 2)
Quarter: 2016Q4

REPORT INFORMATION
  Report Type: Spontaneous
  Country: US (occurrence: US)
  Receive Date: 20161102
  Receipt Date: 20161130
  Transmission Date: 20170207
  Serious: Yes (Hospitalization, Other)
  Sender: FDA-Public Use
  Company Number: US-JNJFOC-20161025220

PATIENT
  Age: 47 Year
  Sex: Male
  Weight: 108.41 kg

DRUGS (6)
  1. REMICADE [Suspect]
     Active Substance: INFLIXIMAB
     Indication: COLITIS ULCERATIVE
     Route: 042
     Dates: start: 2007
  2. REMICADE [Suspect]
     Active Substance: INFLIXIMAB
     Indication: COLITIS ULCERATIVE
     Dosage: 100MG FOR SOLUTION 6 INTRAVENOUS 5 MG/KG (USUALLY 6 VIALS)
     Route: 042
     Dates: start: 20160328
  3. TAMSULOSIN [Concomitant]
     Active Substance: TAMSULOSIN
     Route: 048
  4. REMICADE [Suspect]
     Active Substance: INFLIXIMAB
     Indication: COLITIS ULCERATIVE
     Route: 042
     Dates: start: 20160604, end: 201610
  5. ESCITALOPRAM [Concomitant]
     Active Substance: ESCITALOPRAM OXALATE
     Dosage: DISPENSE 30 TAB AND REFILL 3
     Route: 048
  6. AMLODIPINE [Concomitant]
     Active Substance: AMLODIPINE BESYLATE
     Dosage: DISPENSE 90 TAB AND REFILL 3
     Route: 048

REACTIONS (7)
  - Arthralgia [Unknown]
  - Diffuse large B-cell lymphoma [Unknown]
  - Pseudopolyp [Unknown]
  - Product use issue [Unknown]
  - Secondary hypertension [Recovered/Resolved]
  - Rectal haemorrhage [Unknown]
  - Off label use [Unknown]

NARRATIVE: CASE EVENT DATE: 2007
